FAERS Safety Report 7219536-3 (Version None)
Quarter: 2011Q1

REPORT INFORMATION
  Report Type: 
  Country: None (occurrence: None)
  Receive Date: 20110111
  Receipt Date: 20110105
  Transmission Date: 20110831
  Serious: Yes (Life-Threatening, Hospitalization)
  Sender: FDA-Public Use
  Company Number: ES-JNJFOC-20110101337

PATIENT
  Age: 77 Year
  Sex: Male

DRUGS (4)
  1. DURAGESIC-100 [Suspect]
     Indication: ILL-DEFINED DISORDER
     Route: 062
  2. RISPERIDONE [Concomitant]
     Indication: SEDATION
     Route: 065
  3. HALOPERIDOL [Concomitant]
     Indication: SEDATION
     Route: 065
  4. CODEINE SUL TAB [Concomitant]
     Indication: SEDATION
     Route: 065

REACTIONS (5)
  - TOXICITY TO VARIOUS AGENTS [None]
  - RESPIRATORY DEPRESSION [None]
  - SOMNOLENCE [None]
  - MIOSIS [None]
  - MEDICATION ERROR [None]
